FAERS Safety Report 9725040 (Version 3)
Quarter: 2014Q1

REPORT INFORMATION
  Report Type: Spontaneous
  Country: US (occurrence: US)
  Receive Date: 20131203
  Receipt Date: 20140310
  Transmission Date: 20141002
  Serious: Yes (Hospitalization)
  Sender: FDA-Public Use
  Company Number: US-BIOGENIDEC-2013BI115550

PATIENT
  Age: 49 Year
  Sex: Male

DRUGS (2)
  1. AVONEX [Suspect]
     Indication: MULTIPLE SCLEROSIS
     Route: 030
  2. AVONEX [Suspect]
     Indication: MULTIPLE SCLEROSIS
     Route: 030
     Dates: start: 2010

REACTIONS (5)
  - Coronary artery occlusion [Recovered/Resolved]
  - Diabetes mellitus [Not Recovered/Not Resolved]
  - Blood pressure abnormal [Unknown]
  - Dyspnoea [Not Recovered/Not Resolved]
  - Depression [Unknown]
